FAERS Safety Report 11472956 (Version 4)
Quarter: 2015Q4

REPORT INFORMATION
  Report Type: Spontaneous
  Country: AU (occurrence: AU)
  Receive Date: 20150908
  Receipt Date: 20151027
  Transmission Date: 20160304
  Serious: Yes (Hospitalization)
  Sender: FDA-Public Use
  Company Number: AU-SA-2015SA134389

PATIENT
  Age: 43 Year
  Sex: Female

DRUGS (3)
  1. FINGOLIMOD [Concomitant]
     Active Substance: FINGOLIMOD
     Dosage: DISCONTINUED DUE TO ITS EFFICACY.
     Route: 048
     Dates: start: 201407, end: 201506
  2. RITUXIMAB [Concomitant]
     Active Substance: RITUXIMAB
     Indication: MULTIPLE SCLEROSIS
     Route: 042
     Dates: start: 2014
  3. LEMTRADA [Suspect]
     Active Substance: ALEMTUZUMAB
     Route: 065
     Dates: start: 20150622, end: 20150626

REACTIONS (5)
  - Immune thrombocytopenic purpura [Recovering/Resolving]
  - Thrombocytopenia [Recovering/Resolving]
  - Contusion [Recovering/Resolving]
  - Oral mucosal blistering [Recovering/Resolving]
  - Rash [Recovering/Resolving]

NARRATIVE: CASE EVENT DATE: 2015
